FAERS Safety Report 10044883 (Version 1)
Quarter: 2014Q1

REPORT INFORMATION
  Report Type: Spontaneous
  Country: CA (occurrence: CA)
  Receive Date: 20140328
  Receipt Date: 20140328
  Transmission Date: 20141002
  Serious: Yes (Death, Other)
  Sender: FDA-Public Use
  Company Number: CA-PFIZER INC-2014084491

PATIENT
  Age: 69 Year
  Sex: Female

DRUGS (4)
  1. BOSUTINIB [Suspect]
     Indication: CHRONIC MYELOID LEUKAEMIA
     Dosage: UNK, TAKEN DAILY FOR 5 DAYS (MONTH 1)
  2. BOSUTINIB [Suspect]
     Dosage: 400 MG, DAILY (MONTH 1)
  3. BOSUTINIB [Suspect]
     Dosage: 500 MG, DAILY (MONTH 2)
  4. HYDROCHLOROTHIAZIDE [Concomitant]
     Dosage: UNK

REACTIONS (5)
  - Death [Fatal]
  - Pleural effusion [Unknown]
  - Pulmonary mass [Unknown]
  - Abdominal pain [Unknown]
  - Nausea [Recovered/Resolved]
